FAERS Safety Report 6427671-2 (Version None)
Quarter: 2009Q4

REPORT INFORMATION
  Report Type: 
  Country: None (occurrence: None)
  Receive Date: 20091105
  Receipt Date: 20091027
  Transmission Date: 20100525
  Serious: Yes (Other)
  Sender: FDA-Public Use
  Company Number: CA-RANBAXY-2009RR-28763

PATIENT
  Sex: Male

DRUGS (8)
  1. FENOFIBRATE [Suspect]
     Dosage: 200 MG, QD
     Dates: start: 20010101
  2. FENOFIBRATE [Suspect]
     Dosage: 145 MG, QD
     Dates: end: 20080101
  3. PIOGLITAZONE [Concomitant]
     Dosage: 30 MG, QD
     Dates: start: 20010101
  4. PRAVASTATIN [Concomitant]
     Dosage: 20 MG, QD
  5. ASPIRIN [Concomitant]
  6. METFORMIN [Concomitant]
  7. RAMIPRIL [Concomitant]
  8. METOPROLOL [Concomitant]

REACTIONS (2)
  - GLYCOSYLATED HAEMOGLOBIN INCREASED [None]
  - HIGH DENSITY LIPOPROTEIN DECREASED [None]
